FAERS Safety Report 6217169-9 (Version None)
Quarter: 2009Q2

REPORT INFORMATION
  Report Type: 
  Country: None (occurrence: None)
  Receive Date: 20090608
  Receipt Date: 20070921
  Transmission Date: 20091009
  Serious: Yes (Other)
  Sender: FDA-Public Use
  Company Number: US-ASTRAZENECA-2006UW22947

PATIENT
  Age: 53 Year
  Sex: Female
  Weight: 81.2 kg

DRUGS (36)
  1. SEROQUEL [Suspect]
     Indication: BIPOLAR DISORDER
     Route: 048
     Dates: start: 19970101, end: 20030101
  2. SEROQUEL [Suspect]
     Indication: SCHIZOPHRENIA
     Route: 048
     Dates: start: 19970101, end: 20030101
  3. SEROQUEL [Suspect]
     Indication: DEPRESSION
     Route: 048
     Dates: start: 19970101, end: 20030101
  4. SEROQUEL [Suspect]
     Dosage: 25-100 MG
     Route: 048
     Dates: start: 20011129
  5. SEROQUEL [Suspect]
     Dosage: 25-100 MG
     Route: 048
     Dates: start: 20011129
  6. SEROQUEL [Suspect]
     Dosage: 25-100 MG
     Route: 048
     Dates: start: 20011129
  7. ABILIFY [Concomitant]
     Dates: start: 20040501
  8. CLOZARIL [Concomitant]
  9. HALDOL [Concomitant]
  10. NAVANE [Concomitant]
     Dates: start: 19960901, end: 19970101
  11. THORAZINE [Concomitant]
     Dates: start: 19960901, end: 20000101
  12. TRILAFON [Concomitant]
  13. ZYPREXA [Concomitant]
  14. DEPAKOTE [Concomitant]
  15. COGENTIN [Concomitant]
  16. ZIPRASIDONE HCL [Concomitant]
  17. CYMBALTA [Concomitant]
  18. LASIX [Concomitant]
  19. COREG [Concomitant]
  20. EFFEXOR XR [Concomitant]
     Dosage: 75-150 MG
     Dates: start: 20011129
  21. ZOLOFT [Concomitant]
     Dosage: 200-180 MG
     Route: 048
     Dates: start: 20011129
  22. TRAZODONE HCL [Concomitant]
     Route: 048
     Dates: start: 20020829
  23. CLONAZEPAM [Concomitant]
     Dates: start: 20011129
  24. XANAX [Concomitant]
     Dosage: 1 MG AS NEEDED
     Dates: start: 20011129
  25. LISINOPRIL [Concomitant]
     Dosage: 1-10 MG
     Dates: start: 20021203
  26. PLAVIX [Concomitant]
     Dates: start: 20051221
  27. DOCUSATE SODIUM [Concomitant]
     Dates: start: 20030716
  28. AMBIEN [Concomitant]
     Dates: start: 20051215
  29. NITROGLYCERIN [Concomitant]
     Dates: start: 20051205
  30. LUNESTA [Concomitant]
     Dates: start: 20051109
  31. MECLIZINE [Concomitant]
     Dates: start: 20050629
  32. LIPITOR [Concomitant]
     Dates: start: 20051221
  33. KLOR-CON [Concomitant]
     Dates: start: 20041005
  34. NAPROXEN [Concomitant]
     Dates: start: 20040521
  35. FUROSEMIDE [Concomitant]
     Dates: start: 20040915
  36. TRILEPTAL [Concomitant]
     Dosage: 300-600 MG
     Dates: start: 20051109

REACTIONS (8)
  - CARDIAC DISORDER [None]
  - DIABETES MELLITUS [None]
  - DIABETES MELLITUS INADEQUATE CONTROL [None]
  - DIABETIC COMPLICATION [None]
  - DIABETIC NEPHROPATHY [None]
  - EYE DISORDER [None]
  - PANCREATITIS [None]
  - TYPE 2 DIABETES MELLITUS [None]
